FAERS Safety Report 5316819-9 (Version None)
Quarter: 2007Q2

REPORT INFORMATION
  Report Type: 
  Country: None (occurrence: None)
  Receive Date: 20070504
  Receipt Date: 20070427
  Transmission Date: 20071010
  Serious: Yes (Hospitalization, Other)
  Sender: FDA-Public Use
  Company Number: IT-GENENTECH-236364

PATIENT
  Sex: Male

DRUGS (2)
  1. RAPTIVA [Suspect]
     Indication: PSORIASIS
     Dosage: 0.4 MG/KG, 1/WEEK
     Route: 065
     Dates: start: 20060710
  2. GLIBOMET [Suspect]
     Indication: DIABETES MELLITUS
     Dosage: 200 MG, QD
     Route: 065
     Dates: start: 20010501

REACTIONS (2)
  - CEREBRAL ISCHAEMIA [None]
  - HEMIANOPIA [None]
